FAERS Safety Report 17974230 (Version 1)
Quarter: 2020Q3

REPORT INFORMATION
  Report Type: Spontaneous
  Country: US (occurrence: US)
  Receive Date: 20200701
  Receipt Date: 20200701
  Transmission Date: 20201103
  Serious: Yes (Other)
  Sender: FDA-Public Use
  Company Number: None

PATIENT
  Age: 64 Year
  Sex: Female
  Weight: 56.7 kg

DRUGS (7)
  1. DULOXETINE HYDROCHLORIDE. [Concomitant]
     Active Substance: DULOXETINE HYDROCHLORIDE
  2. OXYCODONE?ACETAMINOPHEN 10?325MG TABLETS [Suspect]
     Active Substance: ACETAMINOPHEN\OXYCODONE HYDROCHLORIDE
     Indication: PAIN
     Dosage: ?          QUANTITY:1 DF DOSAGE FORM;?
     Route: 048
  3. OXYCODONE?ACETAMINOPHEN 10?325MG TABLETS [Suspect]
     Active Substance: ACETAMINOPHEN\OXYCODONE HYDROCHLORIDE
     Indication: BACK PAIN
     Dosage: ?          QUANTITY:1 DF DOSAGE FORM;?
     Route: 048
  4. ADVAIR 500?50 DISKUS [Concomitant]
  5. VENTOLIN HFT [Concomitant]
  6. PROAIR INHALER [Concomitant]
     Active Substance: ALBUTEROL SULFATE
  7. MONTELUKAST SOD [Concomitant]
     Active Substance: MONTELUKAST SODIUM

REACTIONS (5)
  - Abdominal pain upper [None]
  - Drug ineffective [None]
  - Headache [None]
  - Product complaint [None]
  - Product substitution issue [None]

NARRATIVE: CASE EVENT DATE: 20200522
